FAERS Safety Report 7976911 (Version 2)
Quarter: 2014Q1

REPORT INFORMATION
  Report Type: Spontaneous
  Country: US (occurrence: US)
  Receive Date: 20110607
  Receipt Date: 20140108
  Transmission Date: 20141002
  Serious: Yes (Hospitalization, Disabling, Other)
  Sender: FDA-Public Use
  Company Number: US-ASTRAZENECA-2011SE32263

PATIENT
  Age: 57 Year
  Sex: Female

DRUGS (22)
  1. NEXIUM [Suspect]
     Indication: GASTROOESOPHAGEAL REFLUX DISEASE
     Route: 048
     Dates: start: 2001
  2. NEXIUM [Suspect]
     Indication: DYSPEPSIA
     Route: 048
     Dates: start: 2001
  3. NEXIUM [Suspect]
     Indication: GASTROOESOPHAGEAL REFLUX DISEASE
     Dosage: 1-2 TIMES PER DAY
     Route: 048
     Dates: start: 2001
  4. NEXIUM [Suspect]
     Indication: DYSPEPSIA
     Dosage: 1-2 TIMES PER DAY
     Route: 048
     Dates: start: 2001
  5. PRILOSEC [Suspect]
     Indication: GASTROOESOPHAGEAL REFLUX DISEASE
     Route: 048
  6. PRILOSEC [Suspect]
     Indication: DYSPEPSIA
     Route: 048
  7. PRILOSEC OTC [Suspect]
     Indication: GASTROOESOPHAGEAL REFLUX DISEASE
     Route: 048
  8. PREVACID [Concomitant]
     Indication: GASTROOESOPHAGEAL REFLUX DISEASE
  9. PREVACID [Concomitant]
     Indication: DYSPEPSIA
  10. ZEGERID OTC [Concomitant]
     Indication: GASTROOESOPHAGEAL REFLUX DISEASE
  11. ZEGERID OTC [Concomitant]
     Indication: DYSPEPSIA
  12. ZANTAC [Concomitant]
     Indication: DYSPEPSIA
     Dates: start: 1980
  13. TAGAMET [Concomitant]
     Indication: DYSPEPSIA
     Dates: start: 1980
  14. PEPCID [Concomitant]
     Indication: DYSPEPSIA
     Dates: start: 1980
  15. TUMS [Concomitant]
     Dosage: 2-4 PER DAY
     Dates: start: 1980, end: 1990
  16. ROLAIDS [Concomitant]
     Dosage: 2-4 PER DAY
     Dates: start: 1980, end: 1990
  17. ACTONEL [Concomitant]
     Dates: start: 2010
  18. VIT D [Concomitant]
     Dates: start: 2010
  19. TRAMADOL [Concomitant]
     Dates: start: 2010
  20. HYDROCODONE [Concomitant]
     Dosage: 10-325 MG
     Dates: start: 2010
  21. ASPIRIN [Concomitant]
  22. TYLENOL [Concomitant]

REACTIONS (26)
  - Bone density decreased [Unknown]
  - Spinal fracture [Unknown]
  - Convulsion [Unknown]
  - Osteoporosis [Unknown]
  - Back disorder [Unknown]
  - Gait disturbance [Unknown]
  - Spinal disorder [Unknown]
  - Ankle fracture [Unknown]
  - Vertebral osteophyte [Unknown]
  - Wrist fracture [Unknown]
  - Systemic lupus erythematosus [Unknown]
  - Multiple fractures [Unknown]
  - Foot fracture [Unknown]
  - Hand fracture [Unknown]
  - Neuralgia [Unknown]
  - Sleep apnoea syndrome [Unknown]
  - Osteoarthritis [Unknown]
  - Dyspnoea [Unknown]
  - Bone disorder [Unknown]
  - Arthritis [Unknown]
  - Osteopenia [Unknown]
  - Calcium deficiency [Unknown]
  - Chronic obstructive pulmonary disease [Unknown]
  - Musculoskeletal discomfort [Unknown]
  - Arthropathy [Unknown]
  - Hypertrophy [Unknown]
